FAERS Safety Report 25949153 (Version 1)
Quarter: 2025Q4

REPORT INFORMATION
  Report Type: Spontaneous
  Country: US (occurrence: US)
  Receive Date: 20251022
  Receipt Date: 20251022
  Transmission Date: 20260118
  Serious: Yes (Hospitalization)
  Sender: NOVO NORDISK
  Company Number: US-NOVOPROD-1543275

PATIENT
  Age: 13 Year
  Sex: Male

DRUGS (4)
  1. WEGOVY [Suspect]
     Active Substance: SEMAGLUTIDE
     Indication: Product used for unknown indication
     Dosage: UNK
  2. EMPAVELI [Suspect]
     Active Substance: PEGCETACOPLAN
     Indication: Nephritic syndrome
     Dosage: 2160 MG, QW
     Route: 058
     Dates: start: 20250911
  3. EMPAVELI [Suspect]
     Active Substance: PEGCETACOPLAN
     Indication: C3 glomerulopathy
  4. ULTOMIRIS [Concomitant]
     Active Substance: RAVULIZUMAB-CWVZ
     Indication: Product used for unknown indication
     Dosage: UNK
     Dates: end: 20250814

REACTIONS (12)
  - Oedema [Recovered/Resolved]
  - Hypervolaemia [Recovered/Resolved]
  - Pallor [Unknown]
  - Malaise [Unknown]
  - Blood creatinine increased [Recovering/Resolving]
  - Skin striae [Not Recovered/Not Resolved]
  - Decreased appetite [Unknown]
  - Dehydration [Unknown]
  - Vomiting [Not Recovered/Not Resolved]
  - Dizziness [Unknown]
  - Diarrhoea [Recovered/Resolved]
  - Diarrhoea [Not Recovered/Not Resolved]

NARRATIVE: CASE EVENT DATE: 20250901
